FAERS Safety Report 10730502 (Version 1)
Quarter: 2015Q1

REPORT INFORMATION
  Report Type: Spontaneous
  Country: ES (occurrence: ES)
  Receive Date: 20150122
  Receipt Date: 20150122
  Transmission Date: 20150721
  Serious: Yes (Other)
  Sender: FDA-Public Use
  Company Number: ES-PFIZER INC-2015024611

PATIENT
  Age: 55 Year
  Sex: Female

DRUGS (12)
  1. SALAZOPYRINA [Suspect]
     Active Substance: SULFASALAZINE
  2. EUTIROX [Concomitant]
     Active Substance: LEVOTHYROXINE SODIUM
     Dosage: 75 UNK, UNK
  3. LORAZEPAM. [Concomitant]
     Active Substance: LORAZEPAM
     Dosage: 5 MG, 2X/DAY
  4. METHOTREXATE SODIUM. [Suspect]
     Active Substance: METHOTREXATE SODIUM
     Indication: PSORIATIC ARTHROPATHY
  5. VOLTAREN [Concomitant]
     Active Substance: DICLOFENAC SODIUM
     Indication: ANTIINFLAMMATORY THERAPY
     Dosage: 100 MG, UNK
     Route: 054
  6. EZETROL [Concomitant]
     Active Substance: EZETIMIBE
     Dosage: 10 MG, UNK
  7. CANDESARTAN [Concomitant]
     Active Substance: CANDESARTAN
     Dosage: 12.05 MG, UNK
  8. OMEPRAZOLE. [Concomitant]
     Active Substance: OMEPRAZOLE
  9. MOTILIUM [Concomitant]
     Active Substance: DOMPERIDONE
     Dosage: UNK, AS NEEDED
  10. CARDYL [Concomitant]
     Active Substance: ATORVASTATIN CALCIUM
     Dosage: 40 MG, UNK
  11. PAROXETINE [Concomitant]
     Active Substance: PAROXETINE\PAROXETINE HYDROCHLORIDE
     Dosage: 20 MG, 1X/DAY
  12. CORTISONE [Concomitant]
     Active Substance: CORTISONE\HYDROCORTISONE
     Dosage: 2 MG, UNK

REACTIONS (6)
  - Hypertension [Unknown]
  - Liver injury [Unknown]
  - Vomiting [Unknown]
  - Blood cholesterol increased [Unknown]
  - Immunosuppression [Unknown]
  - Septic shock [Unknown]

NARRATIVE: CASE EVENT DATE: 201406
